FAERS Safety Report 4316076-6 (Version None)
Quarter: 2004Q1

REPORT INFORMATION
  Report Type: 
  Country: None (occurrence: None)
  Receive Date: 20040303
  Receipt Date: 20040216
  Transmission Date: 20041129
  Serious: Yes (Other)
  Sender: FDA-Public Use
  Company Number: B0323346A

PATIENT
  Sex: 0

DRUGS (1)
  1. HYCAMTIN [Suspect]
     Indication: BRAIN NEOPLASM MALIGNANT
     Dosage: 1.5 MG/M2 / CYCLIC / INTRAVEOUS
     Route: 042

REACTIONS (2)
  - DRUG TOXICITY [None]
  - SUBDURAL HAEMATOMA [None]
